FAERS Safety Report 7269220-5 (Version None)
Quarter: 2011Q1

REPORT INFORMATION
  Report Type: 
  Country: None (occurrence: None)
  Receive Date: 20110124
  Receipt Date: 20110111
  Transmission Date: 20110831
  Serious: Yes (Other)
  Sender: FDA-Public Use
  Company Number: 2011SP001937

PATIENT
  Sex: Female

DRUGS (2)
  1. REBETOL [Suspect]
     Indication: HEPATITIS
  2. PEG-INTRON [Suspect]
     Indication: HEPATITIS
     Dates: start: 20101027

REACTIONS (3)
  - SWOLLEN TONGUE [None]
  - FATIGUE [None]
  - DYSPNOEA [None]
